FAERS Safety Report 8785731 (Version 3)
Quarter: 2012Q4

REPORT INFORMATION
  Report Type: Report from Study
  Country: JP (occurrence: JP)
  Receive Date: 20120914
  Receipt Date: 20121106
  Transmission Date: 20130627
  Serious: Yes (Other)
  Sender: FDA-Public Use
  Company Number: JP-JNJFOC-20120903895

PATIENT
  Age: 57 Year
  Sex: Male
  Weight: 82 kg

DRUGS (24)
  1. STELARA [Suspect]
     Indication: PSORIASIS
     Route: 058
     Dates: start: 20111206
  2. STELARA [Suspect]
     Indication: PSORIASIS
     Route: 058
     Dates: start: 20110913
  3. STELARA [Suspect]
     Indication: PSORIASIS
     Route: 058
     Dates: start: 20110816
  4. STELARA [Suspect]
     Indication: PSORIASIS
     Route: 058
     Dates: start: 20120306
  5. ISCOTIN [Concomitant]
     Indication: PROPHYLAXIS
     Route: 048
     Dates: start: 20110630, end: 20110907
  6. ISCOTIN [Concomitant]
     Indication: PROPHYLAXIS
     Route: 048
     Dates: start: 20110913
  7. NEORAL [Concomitant]
     Indication: PSORIASIS
     Route: 048
     Dates: start: 20110816, end: 20110825
  8. NEORAL [Concomitant]
     Indication: PSORIASIS
     Route: 048
     Dates: start: 20061025, end: 20110815
  9. NEORAL [Concomitant]
     Indication: PSORIASIS
     Route: 048
     Dates: start: 20110826, end: 20110907
  10. GASTROM [Concomitant]
     Route: 048
     Dates: start: 20060803
  11. NORVASC [Concomitant]
     Route: 048
  12. NU-LOTAN [Concomitant]
     Route: 048
  13. BAYASPIRIN [Concomitant]
     Route: 048
     Dates: start: 20111108
  14. STANZOME [Concomitant]
     Indication: PROPHYLAXIS
     Route: 048
     Dates: start: 20111108
  15. PYDOXAL [Concomitant]
     Indication: PROPHYLAXIS
     Route: 048
     Dates: end: 20110907
  16. PYDOXAL [Concomitant]
     Indication: PROPHYLAXIS
     Route: 048
     Dates: start: 20110913
  17. BONALFA [Concomitant]
     Route: 061
     Dates: end: 20110912
  18. DERMOVATE [Concomitant]
     Indication: PSORIASIS
     Route: 061
     Dates: end: 20110912
  19. DRENISON [Concomitant]
     Indication: PSORIASIS
     Route: 062
     Dates: end: 20110912
  20. HIRUDOID (HEPARINOID) [Concomitant]
     Indication: PSORIASIS
     Route: 061
     Dates: end: 20120305
  21. WHITE PETROLATUM [Concomitant]
     Indication: PSORIASIS
     Dates: end: 20110912
  22. OXAROL [Concomitant]
     Indication: PSORIASIS
     Route: 061
  23. MYSER [Concomitant]
     Indication: PSORIASIS
     Route: 061
  24. VOALLA [Concomitant]
     Indication: PSORIASIS
     Route: 061
     Dates: end: 20110912

REACTIONS (2)
  - Lacunar infarction [Not Recovered/Not Resolved]
  - Dizziness [Recovered/Resolved]
